FAERS Safety Report 7364386-0 (Version None)
Quarter: 2011Q1

REPORT INFORMATION
  Report Type: 
  Country: None (occurrence: None)
  Receive Date: 20110321
  Receipt Date: 20110316
  Transmission Date: 20110831
  Serious: Yes (Death)
  Sender: FDA-Public Use
  Company Number: CN-JNJFOC-20110307083

PATIENT
  Sex: Male

DRUGS (2)
  1. AMBROXOL HYDROCHLORIDE [Concomitant]
     Route: 065
  2. CRAVIT [Suspect]
     Indication: PRODUCT USED FOR UNKNOWN INDICATION
     Route: 041

REACTIONS (1)
  - SUDDEN DEATH [None]
